FAERS Safety Report 9747110 (Version 1)
Quarter: 2013Q4

REPORT INFORMATION
  Report Type: Spontaneous
  Country: US (occurrence: US)
  Receive Date: 20131211
  Receipt Date: 20131211
  Transmission Date: 20140711
  Serious: No
  Sender: FDA-Public Use
  Company Number: US-TEVA-445654USA

PATIENT
  Sex: Female
  Weight: 82.63 kg

DRUGS (2)
  1. PARAGARD 380A [Suspect]
     Indication: CONTRACEPTION
  2. RISPERDAL [Concomitant]
     Dates: end: 201311

REACTIONS (1)
  - Oligomenorrhoea [Not Recovered/Not Resolved]
